FAERS Safety Report 10663044 (Version 3)
Quarter: 2015Q1

REPORT INFORMATION
  Report Type: Spontaneous
  Country: IT (occurrence: IT)
  Receive Date: 20141218
  Receipt Date: 20150209
  Transmission Date: 20150720
  Serious: Yes (Hospitalization, Other)
  Sender: FDA-Public Use
  Company Number: IT-PFIZER INC-2014347869

PATIENT
  Age: 55 Year
  Sex: Female

DRUGS (7)
  1. QUETIAPINE [Suspect]
     Active Substance: QUETIAPINE
     Dosage: 40 DF, TOTAL DOSE
     Route: 048
     Dates: start: 20141209, end: 20141209
  2. DIAZEPAM. [Suspect]
     Active Substance: DIAZEPAM
     Dosage: 1 G, TOTAL DOSE
     Route: 048
     Dates: start: 20141209, end: 20141209
  3. RELPAX [Suspect]
     Active Substance: ELETRIPTAN HYDROBROMIDE
     Dosage: 1 DF, TOTAL DOSE
     Route: 048
     Dates: start: 20141209, end: 20141209
  4. SINEMET [Concomitant]
     Active Substance: CARBIDOPA\LEVODOPA
     Dosage: 1 DF, UNK
     Route: 048
     Dates: start: 2012
  5. CONGESCOR [Concomitant]
     Active Substance: BISOPROLOL
     Dosage: 1 DF, UNK
     Route: 048
     Dates: start: 2012
  6. TALOFEN [Suspect]
     Active Substance: PROMAZINE HYDROCHLORIDE
     Dosage: 1 DF, TOTAL DOSE
     Route: 048
     Dates: start: 20141209, end: 20141209
  7. METFORMIN [Concomitant]
     Active Substance: METFORMIN HYDROCHLORIDE
     Indication: DIABETES MELLITUS
     Dosage: 1 DF, UNK
     Route: 048
     Dates: start: 2012

REACTIONS (2)
  - Drug abuse [Recovered/Resolved]
  - Intentional self-injury [Recovered/Resolved]

NARRATIVE: CASE EVENT DATE: 20141209
